FAERS Safety Report 8326733-2 (Version None)
Quarter: 2012Q2

REPORT INFORMATION
  Report Type: 
  Country: None (occurrence: None)
  Receive Date: 20120501
  Receipt Date: 20120409
  Transmission Date: 20120825
  Serious: Yes (Death)
  Sender: FDA-Public Use
  Company Number: US-CELGENEUS-163-21880-12043105

PATIENT
  Sex: Male

DRUGS (17)
  1. CITRACAL PLUS [Concomitant]
     Route: 048
  2. PULMICORT [Concomitant]
     Dosage: 200 MICROGRAM
     Route: 055
  3. LANTUS [Concomitant]
     Route: 041
  4. LIPITOR [Concomitant]
     Dosage: 10 MILLIGRAM
     Route: 048
  5. PLAVIX [Concomitant]
     Dosage: 300 MILLIGRAM
     Route: 048
  6. REVLIMID [Suspect]
     Indication: MYELODYSPLASTIC SYNDROME
     Dosage: 5 MILLIGRAM
     Route: 048
     Dates: start: 20111216
  7. ATENOLOL [Concomitant]
     Dosage: 25 MILLIGRAM
     Route: 048
  8. PROTONIX [Concomitant]
     Dosage: 20 MILLIGRAM
     Route: 048
  9. METFORMIN HCL [Concomitant]
     Dosage: 1000 MILLIGRAM
     Route: 048
  10. PROAIR HFA [Concomitant]
     Route: 055
  11. TYLENOL (CAPLET) [Concomitant]
     Route: 065
  12. ASPIRIN [Concomitant]
     Dosage: 81 MILLIGRAM
     Route: 048
  13. CALCIUM + VITAMIN D [Concomitant]
     Route: 048
  14. BROVANA [Concomitant]
     Dosage: 15 MICROGRAM
     Route: 065
  15. DOXAZOSIN MESYLATE [Concomitant]
     Dosage: 1 MILLIGRAM
     Route: 048
  16. ISOSORBIDE DINITRATE [Concomitant]
     Dosage: 5 MILLIGRAM
     Route: 048
  17. SPIRIVA [Concomitant]
     Route: 048

REACTIONS (1)
  - DEATH [None]
